FAERS Safety Report 7026550-X (Version None)
Quarter: 2010Q4

REPORT INFORMATION
  Report Type: 
  Country: None (occurrence: None)
  Receive Date: 20101004
  Receipt Date: 20100922
  Transmission Date: 20110411
  Serious: Yes (Disabling)
  Sender: FDA-Public Use
  Company Number: DE-PFIZER INC-2008159203

PATIENT
  Age: 38 Year
  Sex: Male

DRUGS (6)
  1. PEGVISOMANT [Suspect]
     Indication: ACROMEGALY
     Dosage: 20 MG VIAL
     Route: 058
     Dates: start: 20030721
  2. INSPRA [Concomitant]
     Dosage: 25 MG, UNK
     Route: 048
     Dates: start: 20070917
  3. ALENDRONIC ACID [Concomitant]
     Dosage: UNK
     Dates: start: 20070917
  4. FERRO SANOL [Concomitant]
     Dosage: UNK
     Dates: start: 20070917
  5. CAVERJECT [Concomitant]
     Dosage: UNK
     Dates: start: 20070917
  6. MARCUMAR [Concomitant]
     Dosage: UNK
     Dates: start: 20070917

REACTIONS (1)
  - ADRENAL NEOPLASM [None]
